FAERS Safety Report 16678460 (Version 1)
Quarter: 2019Q3

REPORT INFORMATION
  Report Type: Spontaneous
  Country: US (occurrence: US)
  Receive Date: 20190807
  Receipt Date: 20190807
  Transmission Date: 20191004
  Serious: No
  Sender: FDA-Public Use
  Company Number: US-PFIZER INC-2018532777

PATIENT
  Age: 43 Year
  Sex: Female

DRUGS (1)
  1. LYRICA CR [Suspect]
     Active Substance: PREGABALIN
     Indication: NEURALGIA
     Dosage: 330 MG, 1X/DAY (ONE TABLET ONCE A DAY 90 DAYS)
     Route: 048

REACTIONS (1)
  - Mental disorder [Unknown]
